FAERS Safety Report 5257486-2 (Version None)
Quarter: 2007Q1

REPORT INFORMATION
  Report Type: 
  Country: None (occurrence: None)
  Receive Date: 20070307
  Receipt Date: 20060818
  Transmission Date: 20070707
  Serious: No
  Sender: FDA-Public Use
  Company Number: US-GLAXOSMITHKLINE-A0617279A

PATIENT
  Age: 57 Year
  Sex: Female

DRUGS (5)
  1. REQUIP [Suspect]
     Indication: PERIODIC LIMB MOVEMENT DISORDER
     Dosage: 1MG PER DAY
     Route: 048
     Dates: start: 20060531
  2. LIPITOR [Concomitant]
  3. ASPIRIN [Concomitant]
  4. VAGIFEM [Concomitant]
  5. NASACORT [Concomitant]

REACTIONS (9)
  - DYSKINESIA [None]
  - MUSCLE TWITCHING [None]
  - NAUSEA [None]
  - ORAL CANDIDIASIS [None]
  - RASH [None]
  - SCAB [None]
  - SOMNOLENCE [None]
  - TOOTH DISORDER [None]
  - VULVOVAGINAL MYCOTIC INFECTION [None]
